FAERS Safety Report 5357231-6 (Version None)
Quarter: 2007Q2

REPORT INFORMATION
  Report Type: 
  Country: None (occurrence: None)
  Receive Date: 20070614
  Receipt Date: 20070605
  Transmission Date: 20071010
  Serious: Yes (Other)
  Sender: FDA-Public Use
  Company Number: BR-JNJFOC-20070601766

PATIENT
  Age: 62 Year
  Sex: Female
  Weight: 50 kg

DRUGS (3)
  1. LEVAQUIN [Suspect]
     Indication: DYSPNOEA
     Route: 048
  2. LEVAQUIN [Suspect]
     Indication: INFLUENZA
     Route: 048
  3. NATUSS SYRUP [Concomitant]
     Indication: COUGH
     Route: 048

REACTIONS (4)
  - ABDOMINAL DISTENSION [None]
  - ABDOMINAL PAIN [None]
  - DIARRHOEA [None]
  - VOMITING [None]
